FAERS Safety Report 18165428 (Version 1)
Quarter: 2020Q3

REPORT INFORMATION
  Report Type: Spontaneous
  Country: CA (occurrence: CA)
  Receive Date: 20200819
  Receipt Date: 20200819
  Transmission Date: 20201103
  Serious: Yes (Other)
  Sender: FDA-Public Use
  Company Number: CA-B.I. PHARMACEUTICALS,INC./RIDGEFIELD-2020-BI-041936

PATIENT
  Age: 69 Year
  Sex: Female
  Weight: 79 kg

DRUGS (6)
  1. ALVESCO [Suspect]
     Active Substance: CICLESONIDE
     Indication: PRODUCT USED FOR UNKNOWN INDICATION
     Dosage: DOSAGE FORM: AEROSOL, METERED DOSE
     Route: 065
  2. PREDNISONE. [Suspect]
     Active Substance: PREDNISONE
     Indication: PRODUCT USED FOR UNKNOWN INDICATION
     Dosage: DOSAGE FORM: NOT SPECIFIED
     Route: 048
  3. SALBUTAMOL SULFATE [Suspect]
     Active Substance: ALBUTEROL SULFATE
     Indication: PRODUCT USED FOR UNKNOWN INDICATION
     Route: 055
  4. SPIRIVA RESPIMAT [Suspect]
     Active Substance: TIOTROPIUM BROMIDE
     Indication: PRODUCT USED FOR UNKNOWN INDICATION
     Dosage: SPIRIVA RESPIMAT FOR ORAL INHALATION WITH RESPIMAT INHALER ONLY. 5G/DOSE
     Route: 055
  5. INSPIOLTO RESPIMAT [Suspect]
     Active Substance: OLODATEROL HYDROCHLORIDE\TIOTROPIUM BROMIDE MONOHYDRATE
     Indication: PRODUCT USED FOR UNKNOWN INDICATION
     Route: 065
  6. ZENHALE [Suspect]
     Active Substance: FORMOTEROL FUMARATE\MOMETASONE FUROATE
     Indication: PRODUCT USED FOR UNKNOWN INDICATION
     Dosage: DOSAGE FORM: AEROSOL, METERED DOSE
     Route: 055

REACTIONS (22)
  - Lung hyperinflation [Unknown]
  - Respiratory disorder [Unknown]
  - Overweight [Unknown]
  - Hypersensitivity [Unknown]
  - Seasonal allergy [Unknown]
  - Bronchopulmonary aspergillosis allergic [Unknown]
  - Cough [Unknown]
  - Wheezing [Unknown]
  - Body mass index increased [Unknown]
  - Bronchiectasis [Unknown]
  - Dyspnoea [Unknown]
  - Obstructive airways disorder [Unknown]
  - Sleep disorder due to a general medical condition [Unknown]
  - Loss of personal independence in daily activities [Unknown]
  - Pulmonary embolism [Unknown]
  - Rhinitis [Unknown]
  - Therapeutic product effect incomplete [Unknown]
  - Chronic obstructive pulmonary disease [Unknown]
  - Pulmonary function test abnormal [Unknown]
  - Asthma [Unknown]
  - Blood immunoglobulin E increased [Unknown]
  - Lung diffusion disorder [Unknown]
